FAERS Safety Report 11772775 (Version 1)
Quarter: 2015Q4

REPORT INFORMATION
  Report Type: Spontaneous
  Country: US (occurrence: None)
  Receive Date: 20151123
  Receipt Date: 20151123
  Transmission Date: 20160304
  Serious: Yes (Death)
  Sender: FDA-Public Use
  Company Number: None

PATIENT
  Age: 84 Year
  Sex: Male

DRUGS (1)
  1. NPLATE [Suspect]
     Active Substance: ROMIPLOSTIM
     Indication: PLASMA CELL MYELOMA
     Route: 058
     Dates: start: 20151020, end: 20151113

REACTIONS (1)
  - Death [None]

NARRATIVE: CASE EVENT DATE: 20151113
